FAERS Safety Report 6059510-6 (Version None)
Quarter: 2009Q1

REPORT INFORMATION
  Report Type: 
  Country: None (occurrence: None)
  Receive Date: 20090130
  Receipt Date: 20090119
  Transmission Date: 20090719
  Serious: Yes (Other)
  Sender: FDA-Public Use
  Company Number: AU-ELI_LILLY_AND_COMPANY-AU200901003056

PATIENT
  Sex: Male
  Weight: 85 kg

DRUGS (3)
  1. STRATTERA [Suspect]
     Dosage: 10 MG, EACH MORNING DAILY
     Route: 048
     Dates: start: 20060823, end: 20060826
  2. CIALIS [Interacting]
     Dosage: 20 MG, AS NEEDED
     Route: 048
     Dates: start: 20060826
  3. ALCOHOL [Concomitant]
     Dosage: UNK, UNKNOWN
     Route: 065

REACTIONS (9)
  - ANOREXIA [None]
  - DRUG INTERACTION [None]
  - EMOTIONAL DISTRESS [None]
  - FEELING HOT [None]
  - HEADACHE [None]
  - INSOMNIA [None]
  - MOOD ALTERED [None]
  - NAUSEA [None]
  - RESTLESSNESS [None]
